FAERS Safety Report 6983065-2 (Version None)
Quarter: 2010Q3

REPORT INFORMATION
  Report Type: 
  Country: None (occurrence: None)
  Receive Date: 20100914
  Receipt Date: 20100528
  Transmission Date: 20110219
  Serious: No
  Sender: FDA-Public Use
  Company Number: US-PFIZER INC-2010068173

PATIENT
  Sex: Female
  Weight: 69.388 kg

DRUGS (3)
  1. LYRICA [Suspect]
     Dosage: 50 MG, 3X/DAY
     Dates: start: 20070101
  2. LYRICA [Suspect]
     Dosage: 100 MG, 3X/DAY
     Dates: start: 20080101
  3. WELLBUTRIN [Concomitant]
     Dosage: UNK

REACTIONS (2)
  - EAR PAIN [None]
  - WEIGHT INCREASED [None]
